FAERS Safety Report 6589561-4 (Version None)
Quarter: 2010Q1

REPORT INFORMATION
  Report Type: 
  Country: None (occurrence: None)
  Receive Date: 20100212
  Receipt Date: 20100204
  Transmission Date: 20100710
  Serious: Yes (Other)
  Sender: FDA-Public Use
  Company Number: PHBS2008KR01357

PATIENT
  Age: 15 Year
  Sex: Female

DRUGS (2)
  1. VISUDYNE [Suspect]
     Indication: HAEMANGIOMA
     Dosage: 6 MG/M^2 ONCE IV
     Route: 042
  2. VISUDYNE [Suspect]
     Indication: RETINAL DISORDER
     Dosage: 6 MG/M^2 ONCE IV
     Route: 042

REACTIONS (3)
  - CONDITION AGGRAVATED [None]
  - RETINAL OEDEMA [None]
  - VISUAL ACUITY REDUCED [None]
